FAERS Safety Report 7354023-3 (Version None)
Quarter: 2011Q1

REPORT INFORMATION
  Report Type: 
  Country: None (occurrence: None)
  Receive Date: 20110315
  Receipt Date: 20110309
  Transmission Date: 20110831
  Serious: Yes (Life-Threatening, Hospitalization, Other)
  Sender: FDA-Public Use
  Company Number: PHHY2009GB11977

PATIENT
  Sex: Male

DRUGS (11)
  1. CLOZARIL [Suspect]
     Dosage: 200 MG, UNK
     Route: 048
     Dates: start: 20011218
  2. DIAZEPAM [Concomitant]
     Dosage: UNK DF, UNK
  3. CLOZARIL [Suspect]
     Dosage: 100MG AM, 100 MG MIDDAY, 300MG PM
  4. HYDROXYZINE [Concomitant]
     Dosage: 25 MG, UNK
     Route: 048
  5. CLOZARIL [Suspect]
     Indication: SCHIZOPHRENIA
     Dosage: 400 MG, UNK
     Route: 048
     Dates: start: 20011218
  6. DEPAKOTE [Concomitant]
     Dosage: UNK DF, UNK
  7. VALPROIC ACID [Concomitant]
     Dosage: 1000 MG, UNK
     Route: 048
  8. ARIPIPRAZOLE [Concomitant]
     Dosage: UNK DF, UNK
  9. ESOMEPRAZOLE [Concomitant]
     Dosage: 40 MG, UNK
     Route: 048
  10. CITALOPRAM HYDROBROMIDE [Concomitant]
     Dosage: 20 MG, UNK
     Route: 048
  11. FRUSEMIDE [Concomitant]
     Dosage: 250 MG, UNK
     Route: 048

REACTIONS (17)
  - KIDNEY INFECTION [None]
  - ANXIETY [None]
  - HYPERTENSION [None]
  - PNEUMONIA [None]
  - MALAISE [None]
  - HAEMOGLOBIN DECREASED [None]
  - OVERDOSE [None]
  - NEUTROPENIA [None]
  - MENTAL DISORDER [None]
  - HAEMATOCRIT DECREASED [None]
  - RED BLOOD CELL COUNT DECREASED [None]
  - RENAL FAILURE CHRONIC [None]
  - GASTROOESOPHAGEAL REFLUX DISEASE [None]
  - MEAN CELL HAEMOGLOBIN INCREASED [None]
  - WHITE BLOOD CELL COUNT DECREASED [None]
  - PAIN [None]
  - PLATELET COUNT DECREASED [None]
